FAERS Safety Report 5885686-7 (Version None)
Quarter: 2008Q3

REPORT INFORMATION
  Report Type: 
  Country: None (occurrence: None)
  Receive Date: 20080912
  Receipt Date: 20080908
  Transmission Date: 20090109
  Serious: Yes (Other)
  Sender: FDA-Public Use
  Company Number: ADE2008-0285

PATIENT
  Age: 40 Year
  Sex: Male

DRUGS (5)
  1. AMLODIPINE [Suspect]
     Indication: HYPERTENSION
     Dosage: 10 MG,
  2. BISOPROLOL FUMARATE [Suspect]
     Indication: HYPERTENSION
     Dosage: 2.5 MG
  3. METHYLDOPA [Suspect]
     Indication: HYPERTENSION
     Dosage: 1000MG,
  4. LOSARTAN [Suspect]
     Indication: HYPERTENSION
     Dosage: 25MG,
  5. DOXAZOSIN MESYLATE [Suspect]
     Indication: HYPERTENSION
     Dosage: 8MG;

REACTIONS (3)
  - BLOOD CREATINE INCREASED [None]
  - HYPOPERFUSION [None]
  - RENAL DISORDER [None]
